FAERS Safety Report 5524524-9 (Version None)
Quarter: 2007Q4

REPORT INFORMATION
  Report Type: 
  Country: None (occurrence: None)
  Receive Date: 20071122
  Receipt Date: 20071120
  Transmission Date: 20080405
  Serious: Yes (Death)
  Sender: FDA-Public Use
  Company Number: PHEH2007US15014

PATIENT
  Age: 84 Year
  Sex: Male
  Weight: 63 kg

DRUGS (1)
  1. EXJADE [Suspect]
     Indication: BONE MARROW FAILURE
     Dosage: 1250 MG, QD
     Route: 048

REACTIONS (1)
  - DEATH [None]
